FAERS Safety Report 14229545 (Version 1)
Quarter: 2017Q4

REPORT INFORMATION
  Report Type: Spontaneous
  Country: US (occurrence: US)
  Receive Date: 20171128
  Receipt Date: 20171128
  Transmission Date: 20180321
  Serious: Yes (Life-Threatening, Other)
  Sender: FDA-Public Use
  Company Number: US-ROCHE-2029634

PATIENT
  Age: 33 Year
  Sex: Female

DRUGS (6)
  1. KLONOPIN [Suspect]
     Active Substance: CLONAZEPAM
     Indication: ANXIETY
     Dosage: PRIOR TO CONCEPTION UNTIL 13TH WEEK
     Route: 065
  2. KLONOPIN [Suspect]
     Active Substance: CLONAZEPAM
     Indication: POST-TRAUMATIC STRESS DISORDER
  3. TRILEPTAL [Suspect]
     Active Substance: OXCARBAZEPINE
     Indication: BIPOLAR DISORDER
     Dosage: PRIOR TO CONCEPTION UNTIL 13TH WEEK
     Route: 065
  4. ABILIFY [Suspect]
     Active Substance: ARIPIPRAZOLE
     Dosage: FROM 17TH WEEK UNTIL DELIVERY
     Route: 065
  5. ABILIFY [Suspect]
     Active Substance: ARIPIPRAZOLE
     Indication: BIPOLAR DISORDER
     Dosage: PRIOR CONCEPTION UNTIL 12TH WEEK
     Route: 065
  6. ABILIFY [Suspect]
     Active Substance: ARIPIPRAZOLE
     Dosage: FROM 13TH WEEK UNTIL 16TH
     Route: 065

REACTIONS (7)
  - Nausea [Unknown]
  - Haemorrhage [Recovered/Resolved]
  - Anaemia [Recovered/Resolved]
  - Haemorrhage in pregnancy [Unknown]
  - Vomiting [Unknown]
  - Maternal exposure during pregnancy [Unknown]
  - Prolonged labour [Recovered/Resolved]
